FAERS Safety Report 12394205 (Version 1)
Quarter: 2016Q2

REPORT INFORMATION
  Report Type: Spontaneous
  Country: GB (occurrence: GB)
  Receive Date: 20160523
  Receipt Date: 20160523
  Transmission Date: 20160815
  Serious: Yes (Other)
  Sender: FDA-Public Use
  Company Number: GB-TEVA-660193ACC

PATIENT
  Age: 59 Year
  Sex: Female
  Weight: 60 kg

DRUGS (7)
  1. ALVERINE [Concomitant]
     Active Substance: ALVERINE
  2. OMEPRAZOLE. [Concomitant]
     Active Substance: OMEPRAZOLE
  3. PREMARIN [Concomitant]
     Active Substance: ESTROGENS, CONJUGATED
  4. CARBOMER [Concomitant]
     Active Substance: CARBOMER
  5. MACROGOL [Concomitant]
     Active Substance: POLYETHYLENE GLYCOLS
  6. SALMETEROL [Concomitant]
     Active Substance: SALMETEROL
  7. METOCLOPRAMIDE. [Suspect]
     Active Substance: METOCLOPRAMIDE
     Indication: NAUSEA
     Dosage: 30 MILLIGRAM DAILY;
     Route: 048
     Dates: start: 201510

REACTIONS (8)
  - Breast swelling [Unknown]
  - Breast induration [Unknown]
  - Nipple pain [Unknown]
  - Sensitisation [Unknown]
  - Breast pain [Unknown]
  - Nipple swelling [Unknown]
  - Breast discomfort [Unknown]
  - Breast enlargement [Unknown]

NARRATIVE: CASE EVENT DATE: 20160423
